FAERS Safety Report 5957455-0 (Version None)
Quarter: 2008Q4

REPORT INFORMATION
  Report Type: 
  Country: None (occurrence: None)
  Receive Date: 20081114
  Receipt Date: 20081104
  Transmission Date: 20090506
  Serious: Yes (Life-Threatening, Hospitalization)
  Sender: FDA-Public Use
  Company Number: GXKR2008DE10431

PATIENT
  Sex: Male
  Weight: 104 kg

DRUGS (7)
  1. ACETAMINOPHEN [Suspect]
     Indication: BACK PAIN
     Dosage: 500 MG, OT
     Dates: start: 20080215, end: 20080222
  2. DICLOFENAC SODIUM [Suspect]
     Indication: BACK PAIN
     Dosage: 75 MG, QD, ORAL
     Route: 048
     Dates: start: 20080201, end: 20080205
  3. DICLOFENAC SODIUM [Suspect]
     Indication: BACK PAIN
     Dosage: 75 MG, QD, ORAL
     Route: 048
     Dates: start: 20080208, end: 20080212
  4. NEXIUM [Suspect]
     Dosage: ORAL
     Route: 048
     Dates: start: 20070601, end: 20080221
  5. LEVOTHYROXINE SODIUM [Concomitant]
  6. LISINOPRIL AND HYDROCHLOROTHIAZIDE [Concomitant]
  7. LISINOPRIL [Concomitant]

REACTIONS (3)
  - COLONIC FISTULA [None]
  - PANCREATIC PSEUDOCYST [None]
  - PANCREATITIS ACUTE [None]
